FAERS Safety Report 5664806-3 (Version None)
Quarter: 2008Q1

REPORT INFORMATION
  Report Type: 
  Country: None (occurrence: None)
  Receive Date: 20080314
  Receipt Date: 20080303
  Transmission Date: 20080703
  Serious: Yes (Other)
  Sender: FDA-Public Use
  Company Number: CA-PFIZER INC-2008021923

PATIENT
  Sex: Male

DRUGS (1)
  1. CHANTIX [Suspect]

REACTIONS (9)
  - CHEST PAIN [None]
  - CONSTIPATION [None]
  - DYSPNOEA [None]
  - FLATULENCE [None]
  - HYPERTENSION [None]
  - IMPAIRED WORK ABILITY [None]
  - NECK MASS [None]
  - PHARYNGEAL OEDEMA [None]
  - SWELLING FACE [None]
